FAERS Safety Report 21306127 (Version 1)
Quarter: 2022Q3

REPORT INFORMATION
  Report Type: Spontaneous
  Country: US (occurrence: US)
  Receive Date: 20220908
  Receipt Date: 20220908
  Transmission Date: 20221027
  Serious: Yes (Other)
  Sender: FDA-Public Use
  Company Number: US-ALKEM LABORATORIES LIMITED-US-ALKEM-2022-09232

PATIENT
  Age: 57 Year
  Sex: Male

DRUGS (1)
  1. AZATHIOPRINE [Suspect]
     Active Substance: AZATHIOPRINE
     Indication: Product used for unknown indication
     Dosage: 100 MILLIGRAM, QD (DAY)
     Route: 065

REACTIONS (4)
  - Pancreatitis acute [Recovering/Resolving]
  - Panniculitis [Unknown]
  - Hypersensitivity [Recovered/Resolved]
  - Erythema nodosum [Unknown]
